FAERS Safety Report 6473503-6 (Version None)
Quarter: 2009Q4

REPORT INFORMATION
  Report Type: 
  Country: None (occurrence: None)
  Receive Date: 20091204
  Receipt Date: 20081015
  Transmission Date: 20100525
  Serious: Yes (Other)
  Sender: FDA-Public Use
  Company Number: GB-ELI_LILLY_AND_COMPANY-GB200810004184

PATIENT
  Age: 20 Year
  Sex: Male

DRUGS (5)
  1. HUMATROPE [Suspect]
     Indication: GROWTH HORMONE DEFICIENCY
     Dosage: 0.3 MG, DAILY (1/D)
     Route: 065
     Dates: start: 20070101
  2. DDAVP [Concomitant]
     Indication: DIABETES INSIPIDUS
     Dosage: 20 UG, 2/D
     Route: 045
  3. DDAVP [Concomitant]
     Dosage: 200 UG, 3/D
     Route: 048
  4. HYDROCORTISONE [Concomitant]
     Indication: ADRENAL INSUFFICIENCY
     Dosage: 5 MG, 2/D
     Route: 065
  5. LEVOTHYROXINE SODIUM [Concomitant]
     Dosage: 125 UG, DAILY (1/D)
     Route: 065

REACTIONS (1)
  - HYPERNATRAEMIA [None]
